FAERS Safety Report 5313126-5 (Version None)
Quarter: 2007Q2

REPORT INFORMATION
  Report Type: 
  Country: None (occurrence: None)
  Receive Date: 20070430
  Receipt Date: 20070419
  Transmission Date: 20071010
  Serious: Yes (Hospitalization)
  Sender: FDA-Public Use
  Company Number: FR-PFIZER INC-2007033143

PATIENT
  Age: 74 Year
  Sex: Female

DRUGS (16)
  1. ATARAX [Suspect]
     Dosage: DAILY DOSE:50MG-FREQ:FREQUENCY: ONCE
     Route: 042
     Dates: start: 20070319, end: 20070319
  2. EPHEDRINE HYDROCHLORIDE [Suspect]
     Dosage: DAILY DOSE:15MG-FREQ:FREQUENCY: ONCE
     Route: 042
     Dates: start: 20070319, end: 20070319
  3. NEFOPAM HYDROCHLORIDE [Suspect]
     Dosage: DAILY DOSE:40MG
     Route: 042
     Dates: start: 20070319, end: 20070320
  4. TAGAMET [Suspect]
     Dosage: DAILY DOSE:400MG
     Route: 048
     Dates: start: 20070319, end: 20070319
  5. CEFUROXIME SODIUM [Suspect]
     Dosage: DAILY DOSE:750MG
     Route: 042
     Dates: start: 20070319, end: 20070320
  6. HEPARIN-FRACTION [Suspect]
     Dosage: DAILY DOSE:40MG
     Route: 058
  7. SODIUM [Suspect]
  8. BUPIVACAINE [Concomitant]
     Dates: start: 20070319, end: 20070319
  9. MORPHINE [Concomitant]
     Dates: start: 20070319, end: 20070319
  10. SUFENTANIL CITRATE [Concomitant]
     Dates: start: 20070319, end: 20070319
  11. PARACETAMOL [Concomitant]
     Dates: start: 20070319, end: 20070320
  12. KETOPROFEN [Concomitant]
     Dates: start: 20070319, end: 20070320
  13. CELIPROLOL [Concomitant]
  14. ERGOTAMINE TARTRATE AND CAFFEINE [Concomitant]
     Dates: start: 20070320, end: 20070320
  15. SACCHARATED IRON OXIDE [Concomitant]
  16. PANTOPRAZOLE [Concomitant]

REACTIONS (1)
  - ANGLE CLOSURE GLAUCOMA [None]
